FAERS Safety Report 5638085-7 (Version None)
Quarter: 2008Q1

REPORT INFORMATION
  Report Type: 
  Country: None (occurrence: None)
  Receive Date: 20080222
  Receipt Date: 20080222
  Transmission Date: 20080703
  Serious: Yes (Hospitalization)
  Sender: FDA-Public Use
  Company Number: None

PATIENT
  Age: 21 Year
  Sex: Male
  Weight: 72.5755 kg

DRUGS (1)
  1. ACCUTANE [Suspect]
     Indication: ACNE CYSTIC
     Dosage: 2 PILLS DAILY  PO
     Route: 048
     Dates: start: 19850701, end: 19860501

REACTIONS (5)
  - ABSCESS [None]
  - FISTULA REPAIR [None]
  - HEADACHE [None]
  - IRRITABLE BOWEL SYNDROME [None]
  - SINUSITIS [None]
